FAERS Safety Report 23017977 (Version 2)
Quarter: 2023Q4

REPORT INFORMATION
  Report Type: Other
  Country: FR (occurrence: FR)
  Receive Date: 20231003
  Receipt Date: 20231019
  Transmission Date: 20240110
  Serious: Yes (Hospitalization)
  Sender: FDA-Public Use
  Company Number: None

PATIENT

DRUGS (10)
  1. RISPERIDONE [Interacting]
     Active Substance: RISPERIDONE
     Indication: Schizophrenia
     Dosage: 4 MILLIGRAM, QD
     Route: 048
     Dates: end: 20230903
  2. RISPERIDONE [Interacting]
     Active Substance: RISPERIDONE
     Dosage: 8 MILLIGRAM, QD
     Route: 048
     Dates: start: 20230904
  3. ATROPINE SULFATE [Interacting]
     Active Substance: ATROPINE SULFATE
     Indication: Salivary hypersecretion
     Dosage: 1 DROP (1/12 MILLILITRE), AS NECESSARY
     Route: 060
  4. CLOZAPINE [Interacting]
     Active Substance: CLOZAPINE
     Indication: Schizophrenia
     Dosage: 700 MILLIGRAM, QD
     Route: 048
  5. DEPAKOTE [Interacting]
     Active Substance: DIVALPROEX SODIUM
     Indication: Schizophrenia
     Dosage: 1500 MILLIGRAM, QD
     Route: 048
  6. TROPATEPINE HYDROCHLORIDE [Interacting]
     Active Substance: TROPATEPINE HYDROCHLORIDE
     Indication: Parkinsonism
     Dosage: 10 MILLIGRAM, QD
     Route: 048
  7. LORMETAZEPAM [Interacting]
     Active Substance: LORMETAZEPAM
     Indication: Sleep disorder
     Dosage: 1 MILLIGRAM, QD
     Route: 048
  8. TERALITHE [Interacting]
     Active Substance: LITHIUM CARBONATE
     Indication: Schizophrenia
     Dosage: 400 MILLIGRAM, QD
     Route: 048
     Dates: start: 20230904
  9. TERALITHE [Interacting]
     Active Substance: LITHIUM CARBONATE
     Dosage: 1200 MILLIGRAM, QD
     Route: 048
     Dates: end: 20230830
  10. TERALITHE [Interacting]
     Active Substance: LITHIUM CARBONATE
     Dosage: 800 MILLIGRAM, QD
     Route: 048
     Dates: start: 20230901, end: 20230903

REACTIONS (5)
  - Drug interaction [Recovered/Resolved]
  - Extrapyramidal disorder [Recovering/Resolving]
  - Fall [Recovering/Resolving]
  - Drug interaction [Recovered/Resolved]
  - Fall [Recovering/Resolving]

NARRATIVE: CASE EVENT DATE: 20230821
